FAERS Safety Report 9600330 (Version 1)
Quarter: 2013Q4

REPORT INFORMATION
  Report Type: Spontaneous
  Country: US (occurrence: US)
  Receive Date: 20131004
  Receipt Date: 20131004
  Transmission Date: 20140711
  Serious: No
  Sender: FDA-Public Use
  Company Number: US-AMGEN-USASP2013034515

PATIENT
  Age: 62 Year
  Sex: Female
  Weight: 58.96 kg

DRUGS (6)
  1. ENBREL [Suspect]
     Indication: PRODUCT USED FOR UNKNOWN INDICATION
     Dosage: 50 MG, QWK
     Route: 058
     Dates: end: 20130510
  2. HUMIRA [Concomitant]
     Dosage: 40 MG/0.8
  3. RECLAST [Concomitant]
     Dosage: 5/100 ML
  4. NEXIUM                             /01479302/ [Concomitant]
     Dosage: 20 MG, UNK
  5. HYDROCODONE/APAP [Concomitant]
     Dosage: 5-500 MG
  6. VITAMIN D                          /00107901/ [Concomitant]
     Dosage: 1000 UNIT, UNK

REACTIONS (5)
  - Condition aggravated [Unknown]
  - Ocular hyperaemia [Unknown]
  - Eye inflammation [Unknown]
  - Eye pain [Unknown]
  - Arthralgia [Unknown]
